FAERS Safety Report 7798294-8 (Version None)
Quarter: 2011Q4

REPORT INFORMATION
  Report Type: 
  Country: None (occurrence: None)
  Receive Date: 20111005
  Receipt Date: 20110930
  Transmission Date: 20120403
  Serious: Yes (Hospitalization)
  Sender: FDA-Public Use
  Company Number: PHEH2011US05688

PATIENT
  Sex: Female
  Weight: 70 kg

DRUGS (1)
  1. EXJADE [Suspect]
     Indication: SICKLE CELL ANAEMIA
     Dosage: 1750 MG, DAILY
     Route: 048
     Dates: start: 20110901, end: 20110927

REACTIONS (2)
  - INTRA-ABDOMINAL HAEMORRHAGE [None]
  - OVARIAN CYST RUPTURED [None]
